FAERS Safety Report 9243065 (Version 4)
Quarter: 2013Q4

REPORT INFORMATION
  Report Type: Spontaneous
  Country: US (occurrence: US)
  Receive Date: 20130419
  Receipt Date: 20131018
  Transmission Date: 20140711
  Serious: Yes (Life-Threatening)
  Sender: FDA-Public Use
  Company Number: US-ASTRAZENECA-2013SE22968

PATIENT
  Age: 86 Year
  Sex: Male
  Weight: 104.7 kg

DRUGS (9)
  1. SYMBICORT [Suspect]
     Indication: CHRONIC OBSTRUCTIVE PULMONARY DISEASE
     Dosage: 320/9 MCG (160/4.5 MCG BID)
     Route: 055
     Dates: start: 20130115, end: 20130212
  2. CRESTOR [Suspect]
     Indication: HYPERLIPIDAEMIA
     Route: 048
     Dates: start: 2006
  3. SINGLE BLIND PLACEBO [Suspect]
     Indication: CHRONIC OBSTRUCTIVE PULMONARY DISEASE
     Dosage: DAILY
     Route: 048
     Dates: start: 20130115, end: 20130211
  4. PREDNISONE [Concomitant]
     Indication: CHRONIC OBSTRUCTIVE PULMONARY DISEASE
     Route: 048
     Dates: start: 20130206, end: 20130209
  5. SPIRIVA [Concomitant]
     Indication: CHRONIC OBSTRUCTIVE PULMONARY DISEASE
     Dates: start: 20130206
  6. VENTOLIN [Concomitant]
     Dosage: 2 DOSES AS REQUIRED
     Route: 055
  7. VENTOLIN [Concomitant]
     Route: 055
     Dates: start: 2011, end: 20130115
  8. FUROSEMIDE [Concomitant]
     Route: 048
  9. ECOTRIN [Concomitant]
     Indication: PULMONARY HYPERTENSION
     Route: 048
     Dates: start: 20060511

REACTIONS (10)
  - Bronchial carcinoma [Recovering/Resolving]
  - Aortic aneurysm [Recovered/Resolved]
  - Coronary artery disease [Not Recovered/Not Resolved]
  - Hyperlipidaemia [Not Recovered/Not Resolved]
  - Gastrooesophageal reflux disease [Not Recovered/Not Resolved]
  - Bronchitis chronic [Not Recovered/Not Resolved]
  - Bronchopneumonia [Unknown]
  - Bronchitis [Unknown]
  - Hypertension [Not Recovered/Not Resolved]
  - Trigeminal neuralgia [Not Recovered/Not Resolved]
